FAERS Safety Report 11271052 (Version 1)
Quarter: 2015Q3

REPORT INFORMATION
  Report Type: Spontaneous
  Country: US (occurrence: US)
  Receive Date: 20150714
  Receipt Date: 20150714
  Transmission Date: 20151125
  Serious: Yes (Other)
  Sender: FDA-Public Use
  Company Number: US-BAYER-2015-375771

PATIENT
  Age: 32 Year
  Sex: Female
  Weight: 73 kg

DRUGS (1)
  1. COPPERTONE OIL FREE FACES SPF 50 PLUS [Suspect]
     Active Substance: AVOBENZONE\HOMOSALATE\OCTISALATE\OCTOCRYLENE\OXYBENZONE
     Indication: PROPHYLAXIS AGAINST SOLAR RADIATION
     Dosage: 1 UNK, PRN
     Route: 061
     Dates: start: 20150703, end: 20150705

REACTIONS (6)
  - Dyspnoea [Recovered/Resolved]
  - Urticaria [Recovered/Resolved]
  - Burning sensation [Recovered/Resolved]
  - Eye swelling [Recovered/Resolved]
  - Anaphylactic reaction [Recovered/Resolved]
  - Throat irritation [Recovered/Resolved]

NARRATIVE: CASE EVENT DATE: 20150706
